FAERS Safety Report 7711862-4 (Version None)
Quarter: 2011Q3

REPORT INFORMATION
  Report Type: 
  Country: None (occurrence: None)
  Receive Date: 20110826
  Receipt Date: 20101021
  Transmission Date: 20111222
  Serious: No
  Sender: FDA-Public Use
  Company Number: US-BAYER-201037996NA

PATIENT
  Age: 99 Year
  Sex: Female

DRUGS (1)
  1. AVELOX [Suspect]
     Dosage: 400 MG, QD

REACTIONS (1)
  - NO ADVERSE EVENT [None]
